FAERS Safety Report 11345380 (Version 1)
Quarter: 2015Q3

REPORT INFORMATION
  Report Type: Spontaneous
  Country: US (occurrence: US)
  Receive Date: 20150806
  Receipt Date: 20150806
  Transmission Date: 20151125
  Serious: Yes (Other)
  Sender: FDA-Public Use
  Company Number: US-ASTRAZENECA-2015SE74171

PATIENT
  Sex: Male

DRUGS (1)
  1. TUDORZA PRESSAIR [Suspect]
     Active Substance: ACLIDINIUM BROMIDE
     Dosage: 1 PUFF, TWO TIMES A DAY
     Route: 055

REACTIONS (4)
  - Device issue [Unknown]
  - Device malfunction [Unknown]
  - Neoplasm malignant [Unknown]
  - Drug dose omission [Unknown]
